FAERS Safety Report 9841564 (Version 1)
Quarter: 2014Q1

REPORT INFORMATION
  Report Type: Spontaneous
  Country: GB (occurrence: GB)
  Receive Date: 20140124
  Receipt Date: 20140124
  Transmission Date: 20141002
  Serious: Yes (Other)
  Sender: FDA-Public Use
  Company Number: GB-ACTAVIS-2014-00436

PATIENT
  Age: 84 Year
  Sex: Female
  Weight: 50 kg

DRUGS (3)
  1. SALBUTAMOL (UNKNOWN) [Suspect]
     Indication: DIAGNOSTIC PROCEDURE
     Dosage: 4 DF, UNKNOWN; FOUR PUFFS. USED FOR COPD REVIEW; INHALER VIA SPACER
     Route: 055
     Dates: start: 20131224, end: 20131224
  2. SERETIDE [Concomitant]
     Indication: PRODUCT USED FOR UNKNOWN INDICATION
     Dosage: UNK
     Route: 065
  3. SYMBICORT [Concomitant]
     Indication: PRODUCT USED FOR UNKNOWN INDICATION
     Dosage: UNK; TRIALLED RECENTLY INSTEAD OF SERETIDE.
     Route: 065

REACTIONS (2)
  - Dyspnoea [Recovered/Resolved]
  - Stridor [Recovered/Resolved]
